FAERS Safety Report 15089615 (Version 2)
Quarter: 2019Q1

REPORT INFORMATION
  Report Type: Spontaneous
  Country: US (occurrence: US)
  Receive Date: 20180629
  Receipt Date: 20190225
  Transmission Date: 20190417
  Serious: No
  Sender: FDA-Public Use
  Company Number: US-TAKEDA-2018MPI008337

PATIENT
  Sex: Female

DRUGS (2)
  1. LIPITOR [Concomitant]
     Active Substance: ATORVASTATIN CALCIUM
     Dosage: UNK
     Route: 065
  2. NINLARO [Suspect]
     Active Substance: IXAZOMIB CITRATE
     Indication: PLASMA CELL MYELOMA
     Dosage: 4 MILLIGRAM
     Route: 048
     Dates: start: 20180206

REACTIONS (3)
  - Nausea [Unknown]
  - Diarrhoea [Unknown]
  - Off label use [Unknown]
